FAERS Safety Report 13672151 (Version 3)
Quarter: 2019Q2

REPORT INFORMATION
  Report Type: Spontaneous
  Country: US (occurrence: US)
  Receive Date: 20170621
  Receipt Date: 20190403
  Transmission Date: 20190711
  Serious: Yes (Other)
  Sender: FDA-Public Use
  Company Number: US-ASTRAZENECA-2017SE63813

PATIENT
  Age: 63 Year
  Sex: Female
  Weight: 103.4 kg

DRUGS (16)
  1. DICLOFENAC [Concomitant]
     Active Substance: DICLOFENAC
  2. ALBUTEROL. [Concomitant]
     Active Substance: ALBUTEROL
  3. PRILOSEC [Suspect]
     Active Substance: OMEPRAZOLE MAGNESIUM
     Indication: GASTRIC PH DECREASED
     Route: 048
  4. SYNTHROID [Concomitant]
     Active Substance: LEVOTHYROXINE SODIUM
  5. ESTROPIPATE. [Concomitant]
     Active Substance: ESTROPIPATE
  6. HYDROCODONE [Concomitant]
     Active Substance: HYDROCODONE
  7. NEXIUM [Suspect]
     Active Substance: ESOMEPRAZOLE MAGNESIUM
     Indication: GASTRIC PH DECREASED
     Route: 048
     Dates: start: 1998, end: 2013
  8. HYDROCHLOROTHIAZIDE. [Concomitant]
     Active Substance: HYDROCHLOROTHIAZIDE
  9. PAXIL [Concomitant]
     Active Substance: PAROXETINE HYDROCHLORIDE
  10. ZEGERID [Suspect]
     Active Substance: OMEPRAZOLE\SODIUM BICARBONATE
     Indication: GASTRIC PH DECREASED
     Route: 065
  11. PROTONIX [Suspect]
     Active Substance: PANTOPRAZOLE SODIUM
     Indication: GASTRIC PH DECREASED
     Route: 048
  12. VANTIN [Concomitant]
     Active Substance: CEFPODOXIME PROXETIL
  13. CELEBREX [Concomitant]
     Active Substance: CELECOXIB
  14. FLUTICASONE. [Concomitant]
     Active Substance: FLUTICASONE
  15. PRILOSEC OTC [Suspect]
     Active Substance: OMEPRAZOLE MAGNESIUM
     Indication: GASTRIC PH DECREASED
     Route: 048
  16. PREVACID [Suspect]
     Active Substance: LANSOPRAZOLE
     Indication: GASTRIC PH DECREASED
     Route: 065
     Dates: start: 1998, end: 2013

REACTIONS (5)
  - Tubulointerstitial nephritis [Unknown]
  - Renal failure [Unknown]
  - Chronic kidney disease [Unknown]
  - Acute kidney injury [Unknown]
  - End stage renal disease [Unknown]
